FAERS Safety Report 5810825-3 (Version None)
Quarter: 2008Q3

REPORT INFORMATION
  Report Type: 
  Country: None (occurrence: None)
  Receive Date: 20080710
  Receipt Date: 20080625
  Transmission Date: 20090109
  Serious: Yes (Death)
  Sender: FDA-Public Use
  Company Number: 08-203

PATIENT
  Age: 81 Year
  Sex: Male

DRUGS (3)
  1. FAZACLO ODT [Suspect]
     Dosage: 175 MG DAILY PO
     Route: 048
  2. ABILIFY [Concomitant]
  3. PROVIGIL [Concomitant]

REACTIONS (1)
  - DEATH [None]
